FAERS Safety Report 12212008 (Version 1)
Quarter: 2016Q1

REPORT INFORMATION
  Report Type: Spontaneous
  Country: FR (occurrence: FR)
  Receive Date: 20160325
  Receipt Date: 20160325
  Transmission Date: 20160526
  Serious: Yes (Hospitalization, Other)
  Sender: FDA-Public Use
  Company Number: PHHY2016FR037900

PATIENT
  Age: 5 Year
  Sex: Female

DRUGS (2)
  1. ILARIS [Suspect]
     Active Substance: CANAKINUMAB
     Dosage: 70 MG, Q2MO
     Route: 058
     Dates: start: 20160316
  2. ILARIS [Suspect]
     Active Substance: CANAKINUMAB
     Indication: HYPER IGD SYNDROME
     Dosage: 50 MG, Q2MO
     Route: 058
     Dates: end: 201603

REACTIONS (3)
  - Hyper IgD syndrome [Not Recovered/Not Resolved]
  - Pancreatitis [Recovered/Resolved]
  - Lipase increased [Unknown]

NARRATIVE: CASE EVENT DATE: 201602
